FAERS Safety Report 5288243-9 (Version None)
Quarter: 2007Q2

REPORT INFORMATION
  Report Type: 
  Country: None (occurrence: None)
  Receive Date: 20070405
  Receipt Date: 20070327
  Transmission Date: 20071010
  Serious: Yes (Other)
  Sender: FDA-Public Use
  Company Number: DE-JNJFOC-20070306055

PATIENT
  Sex: Female
  Weight: 59 kg

DRUGS (1)
  1. TOPAMAX MIGRANE [Suspect]
     Indication: MIGRAINE
     Route: 048

REACTIONS (2)
  - ALDOLASE INCREASED [None]
  - BLOOD CREATINE PHOSPHOKINASE INCREASED [None]
